FAERS Safety Report 6812541-8 (Version None)
Quarter: 2010Q3

REPORT INFORMATION
  Report Type: 
  Country: None (occurrence: None)
  Receive Date: 20100701
  Receipt Date: 20100622
  Transmission Date: 20110219
  Serious: Yes (Other)
  Sender: FDA-Public Use
  Company Number: DE-PFIZER INC-2009180368

PATIENT
  Age: 75 Year
  Sex: Female
  Weight: 71 kg

DRUGS (2)
  1. SORTIS [Suspect]
     Indication: HYPERCHOLESTEROLAEMIA
     Dosage: 10 MG, 1X/DAY
     Route: 048
  2. MARCUMAR [Concomitant]
     Dosage: UNK

REACTIONS (4)
  - BURSITIS [None]
  - HYPERHIDROSIS [None]
  - MYALGIA [None]
  - TYPE 2 DIABETES MELLITUS [None]
